FAERS Safety Report 24874808 (Version 1)
Quarter: 2025Q1

REPORT INFORMATION
  Report Type: Spontaneous
  Country: US (occurrence: US)
  Receive Date: 20250122
  Receipt Date: 20250122
  Transmission Date: 20250409
  Serious: Yes (Death)
  Sender: PURDUE
  Company Number: US-PURDUE PHARMA-USA-2025-0314750

PATIENT
  Sex: Male

DRUGS (1)
  1. MORPHINE SULFATE [Suspect]
     Active Substance: MORPHINE SULFATE
     Indication: Respiratory rate increased
     Route: 065

REACTIONS (2)
  - Illness [Fatal]
  - Product use in unapproved indication [Unknown]
